FAERS Safety Report 7275680-6 (Version None)
Quarter: 2011Q1

REPORT INFORMATION
  Report Type: 
  Country: None (occurrence: None)
  Receive Date: 20110202
  Receipt Date: 20110202
  Transmission Date: 20110831
  Serious: Yes (Other)
  Sender: FDA-Public Use
  Company Number: None

PATIENT
  Sex: Male
  Weight: 92.5338 kg

DRUGS (1)
  1. LEVAQUIN [Suspect]
     Indication: SKIN INFECTION
     Dosage: 500MG DAILY PO
     Route: 048
     Dates: start: 20090831, end: 20090909

REACTIONS (3)
  - ROTATOR CUFF SYNDROME [None]
  - FALL [None]
  - TENDON INJURY [None]
